FAERS Safety Report 19716395 (Version 2)
Quarter: 2021Q3

REPORT INFORMATION
  Report Type: Report from Study
  Country: None (occurrence: BR)
  Receive Date: 20210819
  Receipt Date: 20210919
  Transmission Date: 20211014
  Serious: Yes (Other)
  Sender: FDA-Public Use
  Company Number: BR-ABBVIE-21K-020-4043017-00

PATIENT
  Sex: Female
  Weight: 55 kg

DRUGS (1)
  1. HUMIRA [Suspect]
     Active Substance: ADALIMUMAB
     Indication: RHEUMATOID ARTHRITIS
     Dosage: UNSPECIFIED DOSE
     Route: 058
     Dates: start: 20100501, end: 202105

REACTIONS (1)
  - Dementia Alzheimer^s type [Unknown]

NARRATIVE: CASE EVENT DATE: 2019
